FAERS Safety Report 9499886 (Version 3)
Quarter: 2013Q3

REPORT INFORMATION
  Report Type: Spontaneous
  Country: GR (occurrence: GR)
  Receive Date: 20130905
  Receipt Date: 20130910
  Transmission Date: 20140515
  Serious: Yes (Other)
  Sender: FDA-Public Use
  Company Number: GR-JNJFOC-20130816678

PATIENT
  Age: 43 Year
  Sex: Female

DRUGS (2)
  1. REMICADE [Suspect]
     Indication: SACROILIITIS
     Dosage: 14 WEEKS AGO STARTED  100MG/VIAL
     Route: 042
     Dates: start: 2013
  2. REMICADE [Suspect]
     Indication: CROHN^S DISEASE
     Dosage: 14 WEEKS AGO STARTED  100MG/VIAL
     Route: 042
     Dates: start: 2013

REACTIONS (3)
  - Pleural effusion [Unknown]
  - Lung consolidation [Unknown]
  - Flank pain [Unknown]
